FAERS Safety Report 21795008 (Version 1)
Quarter: 2022Q4

REPORT INFORMATION
  Report Type: Spontaneous
  Country: US (occurrence: None)
  Receive Date: 20221228
  Receipt Date: 20221228
  Transmission Date: 20230112
  Serious: No
  Sender: FDA-Public Use
  Company Number: None

PATIENT
  Age: 77 Year
  Sex: Female
  Weight: 62.19 kg

DRUGS (23)
  1. LENALIDOMIDE [Suspect]
     Active Substance: LENALIDOMIDE
     Indication: Chronic lymphocytic leukaemia
     Dosage: OTHER FREQUENCY : 21D ON 7D OFF;?
     Route: 048
  2. COREG [Concomitant]
  3. CRESTOR [Concomitant]
  4. ELIQUIS [Concomitant]
  5. FUROSEMIDE [Concomitant]
  6. GABAPENTIN [Concomitant]
  7. HYDROCORTISONE [Concomitant]
  8. LISINOPRIL [Concomitant]
  9. PLAVIX [Concomitant]
  10. PROPRANOLOL [Concomitant]
     Active Substance: PROPRANOLOL HYDROCHLORIDE
  11. TRADJENTA [Concomitant]
  12. VITAMIN B12 [Concomitant]
     Active Substance: CYANOCOBALAMIN
  13. COREG [Concomitant]
  14. CRESTOR [Concomitant]
  15. ELIQUIS [Concomitant]
  16. FUROSEMIDE [Concomitant]
     Active Substance: FUROSEMIDE
  17. GABAPENTIN [Concomitant]
  18. HYDROCORTISONE [Concomitant]
  19. LISINOPRIL [Concomitant]
  20. PLAVIX [Concomitant]
  21. PROPRANOLOL [Concomitant]
  22. TRADJENTA [Concomitant]
  23. VITAMIN B12 [Concomitant]
     Active Substance: CYANOCOBALAMIN

REACTIONS (2)
  - SARS-CoV-2 test positive [None]
  - Therapy interrupted [None]

NARRATIVE: CASE EVENT DATE: 20221204
